FAERS Safety Report 7720272-5 (Version None)
Quarter: 2011Q3

REPORT INFORMATION
  Report Type: 
  Country: None (occurrence: None)
  Receive Date: 20110831
  Receipt Date: 20110824
  Transmission Date: 20111222
  Serious: Yes (Other)
  Sender: FDA-Public Use
  Company Number: US-PFIZER INC-2011001643

PATIENT
  Sex: Male

DRUGS (3)
  1. SUTENT [Suspect]
     Indication: RENAL CELL CARCINOMA
     Dosage: 25 MG, 1X/DAY
     Dates: start: 20101030, end: 20101126
  2. SUTENT [Suspect]
     Dosage: 50 MG, 1X/DAY X 28 DAYS EVERY 42 DAYS
     Dates: start: 20101231
  3. SUTENT [Suspect]
     Dosage: 25 MG, 2X/DAY
     Dates: start: 20101211, end: 20101227

REACTIONS (2)
  - APHASIA [None]
  - HYPERTENSION [None]
